FAERS Safety Report 24150577 (Version 1)
Quarter: 2024Q3

REPORT INFORMATION
  Report Type: Spontaneous
  Country: CA (occurrence: CA)
  Receive Date: 20240730
  Receipt Date: 20240730
  Transmission Date: 20241016
  Serious: Yes (Hospitalization)
  Sender: CHEPLAPHARM
  Company Number: CA-CHEPLA-2024009587

PATIENT
  Age: 60 Year
  Sex: Female

DRUGS (1)
  1. CAPECITABINE [Suspect]
     Active Substance: CAPECITABINE

REACTIONS (6)
  - Enterocolitis [Unknown]
  - Loss of personal independence in daily activities [Unknown]
  - Physical deconditioning [Unknown]
  - Weight decreased [Unknown]
  - Gastrointestinal tube insertion [Unknown]
  - Physiotherapy [Unknown]
